FAERS Safety Report 5318271-6 (Version None)
Quarter: 2007Q2

REPORT INFORMATION
  Report Type: 
  Country: None (occurrence: None)
  Receive Date: 20070507
  Receipt Date: 20070426
  Transmission Date: 20071010
  Serious: Yes (Other)
  Sender: FDA-Public Use
  Company Number: US-PFIZER INC-2007034555

PATIENT
  Sex: Male

DRUGS (4)
  1. XALATAN [Suspect]
  2. LISINOPRIL W/HYDROCHLOROTHIAZIDE [Suspect]
  3. CLONIDINE [Concomitant]
  4. HYDRALAZINE HCL [Concomitant]

REACTIONS (1)
  - AMNESIA [None]
